FAERS Safety Report 8340945-3 (Version None)
Quarter: 2012Q1

REPORT INFORMATION
  Report Type: 
  Country: None (occurrence: None)
  Receive Date: 20120330
  Receipt Date: 20120308
  Transmission Date: 20120608
  Serious: Yes (Other)
  Sender: FDA-Public Use
  Company Number: ADE 12-004

PATIENT
  Age: 62 Year
  Sex: Male
  Weight: 62.3 kg

DRUGS (1)
  1. CIPROFLAXACIN [Suspect]
     Dosage: 400MG/200ML, ONCE, IV
     Route: 042
     Dates: start: 20120307

REACTIONS (2)
  - PHLEBITIS [None]
  - INFUSION SITE REACTION [None]
